FAERS Safety Report 16640947 (Version 1)
Quarter: 2019Q3

REPORT INFORMATION
  Report Type: Spontaneous
  Country: US (occurrence: US)
  Receive Date: 20190729
  Receipt Date: 20190729
  Transmission Date: 20191004
  Serious: No
  Sender: FDA-Public Use
  Company Number: US-BIOGEN-2019BI00767365

PATIENT
  Sex: Female

DRUGS (1)
  1. TYSABRI [Suspect]
     Active Substance: NATALIZUMAB
     Indication: MULTIPLE SCLEROSIS
     Route: 042
     Dates: start: 20170201, end: 20171003

REACTIONS (5)
  - Gait disturbance [Unknown]
  - Spinal column injury [Unknown]
  - Arthralgia [Not Recovered/Not Resolved]
  - Accident [Recovered/Resolved]
  - Tremor [Unknown]
